FAERS Safety Report 25866843 (Version 1)
Quarter: 2025Q4

REPORT INFORMATION
  Report Type: Spontaneous
  Country: US (occurrence: US)
  Receive Date: 20251001
  Receipt Date: 20251001
  Transmission Date: 20260117
  Serious: No
  Sender: RANBAXY
  Company Number: US-SUN PHARMACEUTICAL INDUSTRIES LTD-2024R1-468680

PATIENT
  Sex: Female

DRUGS (1)
  1. BUPRENORPHINE\NALOXONE [Suspect]
     Active Substance: BUPRENORPHINE\NALOXONE
     Indication: Product used for unknown indication
     Dosage: UNK UNK, DAILY
     Route: 060

REACTIONS (5)
  - Oral discomfort [Unknown]
  - Tongue exfoliation [Unknown]
  - Tongue haemorrhage [Unknown]
  - Gastrointestinal pain [Unknown]
  - Abdominal discomfort [Unknown]
